FAERS Safety Report 10399261 (Version 2)
Quarter: 2014Q3

REPORT INFORMATION
  Report Type: Spontaneous
  Country: US (occurrence: US)
  Receive Date: 20140821
  Receipt Date: 20140821
  Transmission Date: 20150326
  Serious: Yes (Hospitalization, Other)
  Sender: FDA-Public Use
  Company Number: US-BAYER-2014-122238

PATIENT
  Sex: Female

DRUGS (1)
  1. BAYER GENUINE ASPIRIN [Suspect]
     Active Substance: ASPIRIN

REACTIONS (6)
  - Fall [None]
  - Cerebrovascular accident [Unknown]
  - Memory impairment [None]
  - Myocardial infarction [Unknown]
  - Joint dislocation [None]
  - Hypoacusis [None]
